FAERS Safety Report 21080337 (Version 1)
Quarter: 2022Q3

REPORT INFORMATION
  Report Type: Spontaneous
  Country: IT (occurrence: IT)
  Receive Date: 20220714
  Receipt Date: 20220714
  Transmission Date: 20221027
  Serious: Yes (Other)
  Sender: FDA-Public Use
  Company Number: IT-VALIDUS PHARMACEUTICALS LLC-IT-VDP-2022-015621

PATIENT

DRUGS (1)
  1. TRENTAL [Suspect]
     Active Substance: PENTOXIFYLLINE
     Indication: Product used for unknown indication
     Dosage: 2 DF (MODIFIED-RELEASE TABLET)
     Route: 048
     Dates: start: 20220615

REACTIONS (11)
  - Tremor [Unknown]
  - Vomiting [Unknown]
  - Diarrhoea [Unknown]
  - Asphyxia [Unknown]
  - Tracheal obstruction [Unknown]
  - Illness [Unknown]
  - Tongue disorder [Unknown]
  - Tongue neoplasm [Unknown]
  - Discharge [Unknown]
  - Wrong technique in product usage process [Unknown]
  - Dry mouth [Unknown]

NARRATIVE: CASE EVENT DATE: 20220615
